FAERS Safety Report 4447212-9 (Version None)
Quarter: 2004Q3

REPORT INFORMATION
  Report Type: 
  Country: None (occurrence: None)
  Receive Date: 20040908
  Receipt Date: 20040908
  Transmission Date: 20050211
  Serious: Yes (Other)
  Sender: FDA-Public Use
  Company Number: None

PATIENT
  Age: 22 Year
  Sex: Male
  Weight: 68.0396 kg

DRUGS (2)
  1. PROZAC [Suspect]
     Indication: DISEASE RECURRENCE
     Dosage: 20-40MGS
     Dates: start: 19971002, end: 19990722
  2. PROZAC [Suspect]
     Indication: MAJOR DEPRESSION
     Dosage: 20-40MGS
     Dates: start: 19971002, end: 19990722

REACTIONS (1)
  - AGGRESSION [None]
